FAERS Safety Report 7618447-9 (Version None)
Quarter: 2011Q3

REPORT INFORMATION
  Report Type: 
  Country: None (occurrence: None)
  Receive Date: 20110718
  Receipt Date: 20110706
  Transmission Date: 20111222
  Serious: Yes (Other)
  Sender: FDA-Public Use
  Company Number: US-MERCK-1106USA00493

PATIENT
  Age: 57 Year
  Sex: Female

DRUGS (3)
  1. FOSAMAX [Suspect]
     Indication: OSTEOPENIA
     Route: 065
     Dates: start: 20101101, end: 20110221
  2. LISINOPRIL [Concomitant]
     Route: 065
  3. SIMVASTATIN [Concomitant]
     Route: 065

REACTIONS (5)
  - DYSPHAGIA [None]
  - BURN OESOPHAGEAL [None]
  - ADVERSE EVENT [None]
  - PAIN [None]
  - DYSPHONIA [None]
